FAERS Safety Report 17423395 (Version 1)
Quarter: 2020Q1

REPORT INFORMATION
  Report Type: Spontaneous
  Country: US (occurrence: US)
  Receive Date: 20200131
  Receipt Date: 20200131
  Transmission Date: 20200409
  Serious: No
  Sender: FDA-Public Use
  Company Number: None

PATIENT
  Age: 57 Year
  Sex: Female

DRUGS (1)
  1. EUFLEXXA [Suspect]
     Active Substance: HYALURONATE SODIUM
     Indication: OSTEOARTHRITIS
     Route: 013
     Dates: start: 201912, end: 202001

REACTIONS (2)
  - Manufacturing product shipping issue [None]
  - Device computer issue [None]

NARRATIVE: CASE EVENT DATE: 20191209
